FAERS Safety Report 8804844 (Version 1)
Quarter: 2012Q4

REPORT INFORMATION
  Report Type: 
  Country: BR (occurrence: BR)
  Receive Date: 20120924
  Receipt Date: 20120924
  Transmission Date: 20130627
  Serious: Yes (Hospitalization, Disabling)
  Sender: FDA-Public Use
  Company Number: BR-ASTRAZENECA-2012SE72216

PATIENT
  Age: 777 Month
  Sex: Female

DRUGS (3)
  1. ATACAND HCT [Suspect]
     Indication: HYPERTENSION
     Dosage: 16/12.5 MG
     Route: 048
     Dates: start: 2006, end: 201209
  2. LERCANIDIPINE [Suspect]
     Indication: HYPERTENSION
     Route: 048
     Dates: start: 2006, end: 2012
  3. LERCANIDIPINE [Suspect]
     Indication: HYPERTENSION
     Route: 048
     Dates: start: 2012, end: 201209

REACTIONS (5)
  - Cerebellar infarction [Recovered/Resolved with Sequelae]
  - Balance disorder [Recovering/Resolving]
  - Blood pressure increased [Not Recovered/Not Resolved]
  - Renal disorder [Not Recovered/Not Resolved]
  - Drug ineffective [Not Recovered/Not Resolved]
